FAERS Safety Report 6283543-8 (Version None)
Quarter: 2009Q3

REPORT INFORMATION
  Report Type: 
  Country: None (occurrence: None)
  Receive Date: 20090724
  Receipt Date: 20090714
  Transmission Date: 20100115
  Serious: Yes (Hospitalization)
  Sender: FDA-Public Use
  Company Number: US-ELI_LILLY_AND_COMPANY-US200907002855

PATIENT

DRUGS (8)
  1. FORTEO [Suspect]
     Dosage: UNK, UNK
     Dates: start: 20090619, end: 20090701
  2. SULAR [Concomitant]
  3. PRAVASTATIN [Concomitant]
  4. ASPIRIN [Concomitant]
  5. FISH OIL [Concomitant]
  6. CLARITIN [Concomitant]
  7. MOTRIN [Concomitant]
  8. VITAMIN D [Concomitant]

REACTIONS (7)
  - ASTHENIA [None]
  - BACK PAIN [None]
  - BALANCE DISORDER [None]
  - DIZZINESS [None]
  - DYSARTHRIA [None]
  - MEMORY IMPAIRMENT [None]
  - MUSCLE SPASMS [None]
